FAERS Safety Report 7508961-9 (Version None)
Quarter: 2011Q2

REPORT INFORMATION
  Report Type: 
  Country: None (occurrence: None)
  Receive Date: 20110527
  Receipt Date: 20110519
  Transmission Date: 20111010
  Serious: Yes (Hospitalization, Other)
  Sender: FDA-Public Use
  Company Number: US-PFIZER INC-2011108872

PATIENT
  Sex: Male

DRUGS (4)
  1. DILANTIN-125 [Suspect]
     Dosage: 100 MG AT MORNING AND 200MG EVERY NIGHT
  2. DILANTIN-125 [Suspect]
     Indication: CONVULSION
     Dosage: 100 MG, 3X/DAY
  3. DILANTIN [Suspect]
     Dosage: 50 MG, 1X/DAY
     Route: 048
  4. DILANTIN [Suspect]
     Indication: CONVULSION
     Dosage: 1 G, UNK
     Route: 042
     Dates: start: 20010330

REACTIONS (1)
  - STEVENS-JOHNSON SYNDROME [None]
